FAERS Safety Report 9993090 (Version 1)
Quarter: 2014Q1

REPORT INFORMATION
  Report Type: Report from Study
  Country: US (occurrence: US)
  Receive Date: 20140310
  Receipt Date: 20140310
  Transmission Date: 20141002
  Serious: No
  Sender: FDA-Public Use
  Company Number: US-ABBVIE-13P-163-1074489-00

PATIENT
  Age: 9 Year
  Sex: Female

DRUGS (1)
  1. LUPRON DEPOT [Suspect]
     Indication: PRECOCIOUS PUBERTY
     Dosage: DID NOT START AT THE TIME OF THIS REPORT

REACTIONS (2)
  - Drug prescribing error [Not Recovered/Not Resolved]
  - Drug dispensing error [Not Recovered/Not Resolved]
